FAERS Safety Report 21755276 (Version 1)
Quarter: 2022Q4

REPORT INFORMATION
  Report Type: Spontaneous
  Country: US (occurrence: US)
  Receive Date: 20221220
  Receipt Date: 20221220
  Transmission Date: 20230113
  Serious: No
  Sender: FDA-Public Use
  Company Number: US-RECKITT BENCKISER HEALTHCARE INT LIMITED-RB-099670-2022

PATIENT
  Age: 5 Year
  Sex: Female
  Weight: 41 kg

DRUGS (1)
  1. DELSYM [Suspect]
     Active Substance: DEXTROMETHORPHAN
     Indication: Illness
     Dosage: 1.000DF
     Route: 048
     Dates: start: 20220922

REACTIONS (3)
  - Nightmare [Recovered/Resolved]
  - Sleep terror [Recovered/Resolved]
  - Abnormal behaviour [Recovered/Resolved]

NARRATIVE: CASE EVENT DATE: 20220922
